FAERS Safety Report 5066680-5 (Version None)
Quarter: 2006Q3

REPORT INFORMATION
  Report Type: 
  Country: None (occurrence: None)
  Receive Date: 20060801
  Receipt Date: 20060727
  Transmission Date: 20061208
  Serious: Yes (Other)
  Sender: FDA-Public Use
  Company Number: US-GLAXOSMITHKLINE-A0613867B

PATIENT
  Sex: Male
  Weight: 3.4 kg

DRUGS (2)
  1. LAMICTAL [Suspect]
  2. IRON SUPPLEMENT [Concomitant]
     Indication: NUTRITIONAL SUPPORT

REACTIONS (3)
  - CARDIAC MURMUR [None]
  - DRUG EXPOSURE DURING PREGNANCY [None]
  - SICKLE CELL ANAEMIA [None]
